FAERS Safety Report 15807570 (Version 3)
Quarter: 2020Q2

REPORT INFORMATION
  Report Type: Spontaneous
  Country: US (occurrence: US)
  Receive Date: 20190110
  Receipt Date: 20200408
  Transmission Date: 20200713
  Serious: Yes (Hospitalization)
  Sender: FDA-Public Use
  Company Number: US-NOVOPROD-640994

PATIENT
  Age: 63 Year
  Sex: Female
  Weight: 81.63 kg

DRUGS (4)
  1. VICTOZA [Suspect]
     Active Substance: LIRAGLUTIDE
     Dosage: 1.8 UNK
     Route: 058
     Dates: end: 2017
  2. VICTOZA [Suspect]
     Active Substance: LIRAGLUTIDE
     Dosage: 1.2 MG
     Route: 058
  3. VICTOZA [Suspect]
     Active Substance: LIRAGLUTIDE
     Indication: TYPE 2 DIABETES MELLITUS
     Dosage: UNK
     Route: 058
     Dates: start: 2015
  4. VICTOZA [Suspect]
     Active Substance: LIRAGLUTIDE
     Dosage: 1.2 MG, QD
     Route: 058
     Dates: start: 201804

REACTIONS (4)
  - Toxicity to various agents [Recovered/Resolved]
  - Clostridium difficile infection [Recovered/Resolved]
  - Hemiparesis [Recovered/Resolved with Sequelae]
  - Brain injury [Recovered/Resolved]

NARRATIVE: CASE EVENT DATE: 2017
